FAERS Safety Report 7538315-0 (Version None)
Quarter: 2011Q2

REPORT INFORMATION
  Report Type: 
  Country: None (occurrence: None)
  Receive Date: 20110609
  Receipt Date: 20070320
  Transmission Date: 20111010
  Serious: Yes (Death, Hospitalization, Other)
  Sender: FDA-Public Use
  Company Number: PHHO2006JP13684

PATIENT
  Sex: Female

DRUGS (4)
  1. DIOVAN [Suspect]
     Indication: HYPERTENSION
     Dosage: 160 MG, DAILY
     Route: 048
     Dates: start: 20030409, end: 20050430
  2. PERINDOPRIL ERBUMINE [Concomitant]
  3. LUPRAC [Concomitant]
  4. CONIEL [Concomitant]

REACTIONS (14)
  - GENERALISED OEDEMA [None]
  - MYOCARDIAL INFARCTION [None]
  - THROMBOTIC STROKE [None]
  - OXYGEN SATURATION [None]
  - DEEP VEIN THROMBOSIS [None]
  - NOCTURNAL DYSPNOEA [None]
  - PULMONARY EMBOLISM [None]
  - OEDEMA PERIPHERAL [None]
  - PYREXIA [None]
  - C-REACTIVE PROTEIN INCREASED [None]
  - CARDIO-RESPIRATORY ARREST [None]
  - CARDIAC FAILURE CHRONIC [None]
  - ATRIAL FIBRILLATION [None]
  - DIABETIC NEPHROPATHY [None]
